FAERS Safety Report 18205371 (Version 6)
Quarter: 2020Q4

REPORT INFORMATION
  Report Type: Spontaneous
  Country: CA (occurrence: CA)
  Receive Date: 20200827
  Receipt Date: 20201014
  Transmission Date: 20210113
  Serious: Yes (Hospitalization, Other)
  Sender: FDA-Public Use
  Company Number: CA-PFIZER INC-2020157904

PATIENT
  Age: 39 Year
  Sex: Male
  Weight: 90 kg

DRUGS (16)
  1. ZIRABEV [Suspect]
     Active Substance: BEVACIZUMAB-BVZR
     Dosage: 860 MG, EVERY 2 WEEKS
     Route: 042
     Dates: start: 20200611
  2. ZIRABEV [Suspect]
     Active Substance: BEVACIZUMAB-BVZR
     Dosage: 860 MG, EVERY 2 WEEKS
     Route: 042
     Dates: start: 20200811
  3. ZIRABEV [Suspect]
     Active Substance: BEVACIZUMAB-BVZR
     Dosage: 860 MG Q 2 WEEKS
     Dates: start: 20200908
  4. ZIRABEV [Suspect]
     Active Substance: BEVACIZUMAB-BVZR
     Dosage: 860 MG, EVERY 2 WEEKS
     Route: 042
     Dates: start: 20200514
  5. ZIRABEV [Suspect]
     Active Substance: BEVACIZUMAB-BVZR
     Dosage: 860 MG Q 2 WEEKS
     Route: 042
     Dates: start: 20200908
  6. ZIRABEV [Suspect]
     Active Substance: BEVACIZUMAB-BVZR
     Dosage: 860 MG, EVERY 2 WEEKS
     Route: 042
     Dates: start: 20200514
  7. ZIRABEV [Suspect]
     Active Substance: BEVACIZUMAB-BVZR
     Dosage: 860 MG, EVERY 2 WEEKS
     Route: 042
     Dates: start: 20200625
  8. ZIRABEV [Suspect]
     Active Substance: BEVACIZUMAB-BVZR
     Dosage: 860 MG, EVERY 2 WEEKS
     Route: 042
     Dates: start: 20200723
  9. PROCARBAZINE [Concomitant]
     Active Substance: PROCARBAZINE
     Dosage: UNK
  10. ZIRABEV [Suspect]
     Active Substance: BEVACIZUMAB-BVZR
     Dosage: 860 MG, EVERY 2 WEEKS
     Route: 042
     Dates: start: 20200811
  11. ZIRABEV [Suspect]
     Active Substance: BEVACIZUMAB-BVZR
     Dosage: 860 MG, EVERY 2 WEEKS
     Route: 042
     Dates: start: 20200825
  12. ZIRABEV [Suspect]
     Active Substance: BEVACIZUMAB-BVZR
     Dosage: 860 MG, EVERY 2 WEEKS
     Route: 042
     Dates: start: 20200415
  13. ZIRABEV [Suspect]
     Active Substance: BEVACIZUMAB-BVZR
     Dosage: 860 MG, EVERY 2 WEEKS
     Route: 042
     Dates: start: 20200415
  14. ZIRABEV [Suspect]
     Active Substance: BEVACIZUMAB-BVZR
     Indication: GLIOBLASTOMA
     Dosage: 10 MG/KG, EVERY 2 WEEKS
     Route: 042
     Dates: start: 20200401
  15. ZIRABEV [Suspect]
     Active Substance: BEVACIZUMAB-BVZR
     Dosage: 860 MG, EVERY 2 WEEKS
     Route: 042
     Dates: start: 20200625
  16. ZIRABEV [Suspect]
     Active Substance: BEVACIZUMAB-BVZR
     Dosage: 860 MG, EVERY 2 WEEKS
     Route: 042
     Dates: start: 20200723

REACTIONS (31)
  - Neoplasm progression [Unknown]
  - Seizure [Unknown]
  - Monocyte count decreased [Recovered/Resolved]
  - Blood pressure fluctuation [Unknown]
  - Dysphagia [Unknown]
  - Arthralgia [Recovered/Resolved]
  - Blood albumin decreased [Recovered/Resolved]
  - Blood glucose increased [Recovered/Resolved]
  - Immature granulocyte count increased [Recovered/Resolved]
  - Red blood cell abnormality [Unknown]
  - Aspartate aminotransferase increased [Recovering/Resolving]
  - Mean cell haemoglobin decreased [Recovering/Resolving]
  - Blood creatinine increased [Recovered/Resolved]
  - Neutrophil count decreased [Recovered/Resolved]
  - Mean cell volume decreased [Not Recovered/Not Resolved]
  - General physical health deterioration [Unknown]
  - Gamma-glutamyltransferase increased [Recovering/Resolving]
  - Alanine aminotransferase increased [Recovering/Resolving]
  - Pneumonia [Unknown]
  - Mean cell haemoglobin concentration decreased [Recovering/Resolving]
  - Haematocrit decreased [Not Recovered/Not Resolved]
  - Haemoglobin decreased [Not Recovered/Not Resolved]
  - Incorrect dose administered [Unknown]
  - Red blood cell elliptocytes present [Unknown]
  - Back pain [Unknown]
  - PCO2 increased [Unknown]
  - Drug level decreased [Unknown]
  - Lymphocyte count decreased [Not Recovered/Not Resolved]
  - Polychromasia [Unknown]
  - Red cell distribution width increased [Not Recovered/Not Resolved]
  - Off label use [Unknown]

NARRATIVE: CASE EVENT DATE: 20200417
